FAERS Safety Report 7219167-5 (Version None)
Quarter: 2011Q1

REPORT INFORMATION
  Report Type: 
  Country: None (occurrence: None)
  Receive Date: 20110111
  Receipt Date: 20101231
  Transmission Date: 20110831
  Serious: Yes (Hospitalization, Other)
  Sender: FDA-Public Use
  Company Number: SG-ELI_LILLY_AND_COMPANY-SG201012002639

PATIENT
  Sex: Female

DRUGS (2)
  1. ANTIHYPERTENSIVES [Concomitant]
  2. FORTEO [Suspect]
     Indication: FRACTURE
     Dosage: UNK, UNKNOWN
     Route: 065

REACTIONS (1)
  - HIP FRACTURE [None]
